FAERS Safety Report 4948115-3 (Version None)
Quarter: 2006Q1

REPORT INFORMATION
  Report Type: 
  Country: None (occurrence: None)
  Receive Date: 20060314
  Receipt Date: 20060301
  Transmission Date: 20060701
  Serious: Yes (Hospitalization, Other)
  Sender: FDA-Public Use
  Company Number: 163-20785-06030290

PATIENT
  Age: 58 Year
  Sex: Male

DRUGS (1)
  1. THALOMID [Suspect]
     Indication: MULTIPLE MYELOMA
     Dosage: 50 MG, DAILY, ORAL
     Route: 048
     Dates: start: 20020422, end: 20050101

REACTIONS (4)
  - BLOOD CREATININE INCREASED [None]
  - DEEP VEIN THROMBOSIS [None]
  - PEPTIC ULCER HAEMORRHAGE [None]
  - PULMONARY EMBOLISM [None]
